FAERS Safety Report 8561802 (Version 2)
Quarter: 2013Q1

REPORT INFORMATION
  Report Type: Spontaneous
  Country: GB (occurrence: GB)
  Receive Date: 20120515
  Receipt Date: 20130115
  Transmission Date: 20140127
  Serious: Yes (Other)
  Sender: FDA-Public Use
  Company Number: GB-UCBSA-057011

PATIENT
  Age: 18 Year
  Sex: Male

DRUGS (4)
  1. VIMPAT [Suspect]
     Indication: EPILEPSY
     Route: 048
     Dates: start: 20120404, end: 20120416
  2. CLOBAZAM [Concomitant]
     Indication: EPILEPSY
     Route: 048
  3. LAMOTRIGINE [Concomitant]
     Indication: EPILEPSY
     Route: 048
  4. VIGABATRIN [Concomitant]
     Indication: EPILEPSY

REACTIONS (3)
  - Swelling face [Recovered/Resolved]
  - Lip swelling [Recovered/Resolved]
  - Oedema mouth [Recovered/Resolved]
